FAERS Safety Report 8482328-1 (Version None)
Quarter: 2012Q3

REPORT INFORMATION
  Report Type: 
  Country: None (occurrence: None)
  Receive Date: 20120702
  Receipt Date: 20120626
  Transmission Date: 20120928
  Serious: Yes (Life-Threatening, Hospitalization)
  Sender: FDA-Public Use
  Company Number: DE-BRISTOL-MYERS SQUIBB COMPANY-16583536

PATIENT
  Age: 71 Year
  Sex: Male
  Weight: 65 kg

DRUGS (2)
  1. SPRYCEL [Suspect]
     Indication: ACUTE MYELOID LEUKAEMIA
     Dosage: INTD 24APR12. RESUMED ON 30MAY12 50MG FROM 30MAY-20JUN12
     Dates: start: 20120402
  2. CYTARABINE [Suspect]
     Indication: ACUTE MYELOID LEUKAEMIA
     Dosage: INTD 01APR12. RESUMED ON 25MAY12. FROM 25-29MAY12 1670MG
     Dates: start: 20120326

REACTIONS (5)
  - EPILEPSY [None]
  - HYPOCALCAEMIA [None]
  - HAEMORRHAGE [None]
  - ENTEROCOLITIS INFECTIOUS [None]
  - HYPOXIC-ISCHAEMIC ENCEPHALOPATHY [None]
